FAERS Safety Report 19264292 (Version 1)
Quarter: 2021Q2

REPORT INFORMATION
  Report Type: Spontaneous
  Country: US (occurrence: US)
  Receive Date: 20210515
  Receipt Date: 20210515
  Transmission Date: 20210717
  Serious: Yes (Other)
  Sender: FDA-Public Use
  Company Number: None

PATIENT
  Age: 79 Year
  Sex: Male
  Weight: 78.75 kg

DRUGS (8)
  1. HYTRIN [Concomitant]
     Active Substance: TERAZOSIN HYDROCHLORIDE
  2. CARVEDILOL 3.125MG [Suspect]
     Active Substance: CARVEDILOL
     Indication: HYPERTENSION
     Dosage: ?          QUANTITY:1 TABLET(S);?
     Route: 048
     Dates: start: 20210327, end: 20210501
  3. ALLOPURINOL. [Concomitant]
     Active Substance: ALLOPURINOL
  4. VITAMIN B12 [Concomitant]
     Active Substance: CYANOCOBALAMIN
  5. ATIVAN [Concomitant]
     Active Substance: LORAZEPAM
  6. PROTONIX [Concomitant]
     Active Substance: PANTOPRAZOLE SODIUM
  7. ALTACE [Concomitant]
     Active Substance: RAMIPRIL
  8. NIACITAMIDE [Concomitant]

REACTIONS (5)
  - Paradoxical drug reaction [None]
  - Drug ineffective [None]
  - Product substitution issue [None]
  - Product taste abnormal [None]
  - Blood pressure increased [None]

NARRATIVE: CASE EVENT DATE: 20210327
